FAERS Safety Report 6066834-5 (Version None)
Quarter: 2009Q1

REPORT INFORMATION
  Report Type: 
  Country: None (occurrence: None)
  Receive Date: 20090205
  Receipt Date: 20090130
  Transmission Date: 20090719
  Serious: Yes (Other)
  Sender: FDA-Public Use
  Company Number: US-JNJFOC-20090200497

PATIENT
  Sex: Female
  Weight: 122.47 kg

DRUGS (11)
  1. DURAGESIC-100 [Suspect]
     Indication: SPINAL COLUMN STENOSIS
     Route: 062
  2. ACTOS [Concomitant]
     Indication: DIABETES MELLITUS
     Route: 048
  3. METFORMIN [Concomitant]
     Indication: DIABETES MELLITUS
     Route: 048
  4. FLUOXETINE HCL [Concomitant]
     Indication: DEPRESSION
     Route: 048
  5. PROPRANOLOL [Concomitant]
     Route: 048
  6. POTASSIUM CHLORIDE [Concomitant]
     Route: 048
  7. HYDROCHLOROTHIAZINE [Concomitant]
     Route: 048
  8. LYRICA [Concomitant]
     Indication: PAIN
     Route: 048
  9. LIPITOR [Concomitant]
     Indication: BLOOD CHOLESTEROL
     Route: 048
  10. FAMOTIDINE [Concomitant]
     Route: 048
  11. PROVENTIL [Concomitant]
     Indication: RESPIRATORY DISORDER
     Route: 055

REACTIONS (5)
  - CHEST PAIN [None]
  - DRUG DOSE OMISSION [None]
  - DYSPNOEA [None]
  - INAPPROPRIATE SCHEDULE OF DRUG ADMINISTRATION [None]
  - PRODUCT QUALITY ISSUE [None]
